FAERS Safety Report 9860327 (Version 1)
Quarter: 2014Q1

REPORT INFORMATION
  Report Type: Spontaneous
  Country: US (occurrence: US)
  Receive Date: 20140202
  Receipt Date: 20140202
  Transmission Date: 20141002
  Serious: Yes (Death)
  Sender: FDA-Public Use
  Company Number: CHPA2014US001464

PATIENT
  Age: 23 Year
  Sex: Male

DRUGS (6)
  1. ACETAMINOPHEN, DIPHENHYDRAMINE CITRATE [Suspect]
     Route: 048
  2. SALICYLATES [Suspect]
     Route: 048
  3. METHOTREXATE [Suspect]
     Route: 048
  4. OXYCODONE [Suspect]
     Route: 048
  5. PREDNISONE [Suspect]
     Route: 048
  6. ETHANOL [Suspect]
     Route: 048

REACTIONS (1)
  - Completed suicide [Fatal]
